FAERS Safety Report 24832488 (Version 1)
Quarter: 2025Q1

REPORT INFORMATION
  Report Type: Spontaneous
  Country: US (occurrence: US)
  Receive Date: 20250110
  Receipt Date: 20250110
  Transmission Date: 20250409
  Serious: Yes (Other)
  Sender: MEDLINE INDUSTRIES, LP
  Company Number: US-Medline Industries, LP-2168835

PATIENT
  Sex: Female

DRUGS (1)
  1. READYPREP CHG [Suspect]
     Active Substance: CHLORHEXIDINE GLUCONATE

REACTIONS (1)
  - Rash [Unknown]

NARRATIVE: CASE EVENT DATE: 20240405
